FAERS Safety Report 8375254-X (Version None)
Quarter: 2012Q2

REPORT INFORMATION
  Report Type: 
  Country: None (occurrence: None)
  Receive Date: 20120522
  Receipt Date: 20120513
  Transmission Date: 20120825
  Serious: Yes (Hospitalization)
  Sender: FDA-Public Use
  Company Number: US-BIOGENIDEC-2012BI014957

PATIENT
  Age: 43 Year
  Sex: Female

DRUGS (1)
  1. TYSABRI [Suspect]
     Indication: MULTIPLE SCLEROSIS
     Route: 042
     Dates: start: 20090127

REACTIONS (7)
  - CHEST DISCOMFORT [None]
  - PANIC ATTACK [None]
  - DEPRESSION [None]
  - ANXIETY [None]
  - WEIGHT DECREASED [None]
  - DIZZINESS [None]
  - TONSILLITIS [None]
